FAERS Safety Report 22518701 (Version 1)
Quarter: 2023Q2

REPORT INFORMATION
  Report Type: Spontaneous
  Country: US (occurrence: None)
  Receive Date: 20230602
  Receipt Date: 20230602
  Transmission Date: 20230721
  Serious: Yes (Death)
  Sender: FDA-Public Use
  Company Number: None

PATIENT
  Sex: Male
  Weight: 106.59 kg

DRUGS (1)
  1. OZEMPIC [Suspect]
     Active Substance: SEMAGLUTIDE
     Indication: Type 2 diabetes mellitus
     Dosage: FREQUENCY : WEEKLY;?
     Route: 058

REACTIONS (5)
  - Depression [None]
  - Suicidal ideation [None]
  - Weight decreased [None]
  - Gun shot wound [None]
  - Completed suicide [None]

NARRATIVE: CASE EVENT DATE: 20230514
